FAERS Safety Report 6125203-X (Version None)
Quarter: 2009Q1

REPORT INFORMATION
  Report Type: 
  Country: None (occurrence: None)
  Receive Date: 20090318
  Receipt Date: 20090303
  Transmission Date: 20090719
  Serious: Yes (Death)
  Sender: FDA-Public Use
  Company Number: 8042756

PATIENT
  Age: 70 Year
  Sex: Male

DRUGS (3)
  1. KEPPRA [Suspect]
     Indication: EPILEPSY
     Dosage: 500 MG 4/D PO
     Route: 048
     Dates: start: 20081128, end: 20090124
  2. VIMPAT [Suspect]
     Indication: EPILEPSY
     Dosage: 50 MG 2/D PO
     Route: 048
     Dates: start: 20090101, end: 20090124
  3. RIVOTRIL [Suspect]
     Indication: EPILEPSY
     Dosage: 2 MG 3/D PO
     Route: 048
     Dates: start: 20081128, end: 20090124

REACTIONS (2)
  - ASPIRATION [None]
  - BRAIN INJURY [None]
